FAERS Safety Report 9124968 (Version 2)
Quarter: 2013Q2

REPORT INFORMATION
  Report Type: Spontaneous
  Country: US (occurrence: US)
  Receive Date: 20130121
  Receipt Date: 20130423
  Transmission Date: 20140414
  Serious: No
  Sender: FDA-Public Use
  Company Number: US-009507513-1301USA008416

PATIENT
  Age: 45 Year
  Sex: Female
  Weight: 60.32 kg

DRUGS (7)
  1. NUVARING [Suspect]
     Indication: CONTRACEPTION
     Dosage: UNK, 1 PER MONTH
     Route: 067
     Dates: start: 20110121
  2. NUVARING [Suspect]
     Indication: DYSMENORRHOEA
  3. LEVOTHYROXINE SODIUM [Concomitant]
  4. XANAX [Concomitant]
  5. CELEXA [Concomitant]
  6. FLEXERIL [Concomitant]
  7. ACYCLOVIR [Concomitant]

REACTIONS (1)
  - Metrorrhagia [Recovered/Resolved]
